FAERS Safety Report 26130340 (Version 2)
Quarter: 2025Q4

REPORT INFORMATION
  Report Type: Spontaneous
  Country: RU (occurrence: RU)
  Receive Date: 20251208
  Receipt Date: 20251219
  Transmission Date: 20260117
  Serious: Yes (Other)
  Sender: TERSERA THERAPEUTICS
  Company Number: RU-ASTRAZENECA-202511EAF024486RU

PATIENT

DRUGS (3)
  1. GOSERELIN [Suspect]
     Active Substance: GOSERELIN
     Indication: Therapeutic ovarian suppression
     Dosage: UNK
     Route: 065
     Dates: start: 202111, end: 202207
  2. ZOLADEX [Suspect]
     Active Substance: GOSERELIN ACETATE
     Indication: Therapeutic ovarian suppression
     Dosage: UNK
     Route: 065
  3. TAMOXIFEN [Suspect]
     Active Substance: TAMOXIFEN
     Indication: Invasive breast carcinoma
     Dosage: 20 MILLIGRAM, QD
     Route: 065

REACTIONS (5)
  - Abortion missed [Recovered/Resolved]
  - Unwanted pregnancy [Recovered/Resolved]
  - Abdominal pain [Unknown]
  - Amenorrhoea [Not Recovered/Not Resolved]
  - Exposure during pregnancy [Recovered/Resolved]
